FAERS Safety Report 8662062 (Version 2)
Quarter: 2012Q4

REPORT INFORMATION
  Report Type: 
  Country: IT (occurrence: IT)
  Receive Date: 20120712
  Receipt Date: 20120907
  Transmission Date: 20130627
  Serious: Yes (Death, Hospitalization)
  Sender: FDA-Public Use
  Company Number: IT-CELGENEUS-083-21880-12063973

PATIENT
  Age: 75 Year
  Sex: Male

DRUGS (4)
  1. REVLIMID [Suspect]
     Indication: MULTIPLE MYELOMA
     Dosage: 10 mg/die
     Route: 048
     Dates: start: 201108, end: 201204
  2. DEXAMETHASONE [Concomitant]
     Indication: MULTIPLE MYELOMA
     Dosage: 40 Milligram
     Route: 065
     Dates: start: 201108, end: 201204
  3. CYCLOPHOSPHAMIDE [Concomitant]
     Indication: MULTIPLE MYELOMA
     Dosage: 500 mg/w
     Route: 041
     Dates: start: 201108, end: 201204
  4. CYCLOPHOSPHAMIDE [Concomitant]
     Dosage: 500 mg/w
     Route: 048
     Dates: end: 201204

REACTIONS (5)
  - Cardiac arrest [Fatal]
  - Dysphagia [Unknown]
  - Dysphonia [Unknown]
  - Brain stem ischaemia [Unknown]
  - Atrial fibrillation [Unknown]
